FAERS Safety Report 6722076-9 (Version None)
Quarter: 2010Q2

REPORT INFORMATION
  Report Type: 
  Country: None (occurrence: None)
  Receive Date: 20100512
  Receipt Date: 20100428
  Transmission Date: 20101027
  Serious: Yes (Hospitalization, Disabling)
  Sender: FDA-Public Use
  Company Number: DE-ELI_LILLY_AND_COMPANY-DE201002004589

PATIENT
  Sex: Male
  Weight: 85 kg

DRUGS (22)
  1. EFFIENT [Suspect]
     Indication: PERCUTANEOUS CORONARY INTERVENTION
     Dosage: 10 MG, UNKNOWN
     Route: 048
     Dates: start: 20090426
  2. EFFIENT [Suspect]
     Dosage: 5 MG, DAILY (1/D) (IN THE MORNING)
     Route: 048
     Dates: end: 20100401
  3. PLAVIX [Concomitant]
     Dosage: UNK, UNKNOWN
     Route: 065
     Dates: end: 20090425
  4. DELIX [Concomitant]
     Dosage: 2.5 MG, 2/D
     Route: 065
  5. SORTIS [Concomitant]
     Indication: HYPERCHOLESTEROLAEMIA
     Dosage: 10 MG, DAILY (1/D)
     Route: 065
     Dates: end: 20100103
  6. NATRILIX [Concomitant]
     Dosage: 2.5 MG, DAILY (1/D)
     Route: 065
  7. ASPIRIN [Concomitant]
     Dosage: 100 MG, UNKNOWN
     Route: 065
  8. FOLSAURE [Concomitant]
     Dosage: 5 MG, UNKNOWN
     Route: 065
  9. OMACOR [Concomitant]
     Dosage: UNK, UNKNOWN
     Route: 065
  10. ALLOPURINOL [Concomitant]
     Dosage: 300 MG (1/2)
     Route: 065
  11. PANTOPRAZOL [Concomitant]
     Dosage: 20 MG, DAILY (1/D) (IN THE MORNING)
     Route: 065
  12. ATENOLOL [Concomitant]
     Dosage: 25 MG, 2/D (MORNING AND EVENING)
     Route: 065
  13. CREON [Concomitant]
     Dosage: 25000 D/F, 3/D (MORNING, NOON AND EVENING)
     Route: 065
  14. FENTANYL [Concomitant]
     Dosage: UNK, UNKNOWN
     Route: 065
  15. LACTULOSE [Concomitant]
     Dosage: UNK, UNKNOWN
     Route: 048
  16. INDAPAMIDE [Concomitant]
     Dosage: 2.5 MG, DAILY (1/D) (EVENING)
     Route: 065
  17. RAMIPRIL [Concomitant]
     Dosage: 5 MG, ONE AND HALF TIMES DAILY
     Route: 065
  18. SIMVASTATIN [Concomitant]
     Dosage: 20 MG, DAILY (1/D)
     Route: 065
  19. SITAGLIPTIN [Concomitant]
     Dosage: 100 MG, DAILY (1/D)
     Route: 065
  20. ZINKAMIN [Concomitant]
     Dosage: UNK, DAILY (1/D)
     Route: 065
  21. SABAL [Concomitant]
     Dosage: UNK, DAILY (1/D)
     Route: 065
  22. VITAMIN B-12 [Concomitant]
     Dosage: 2 ML, 6/W
     Route: 065

REACTIONS (6)
  - ABASIA [None]
  - HAEMATOMA [None]
  - MYALGIA [None]
  - PNEUMONIA [None]
  - PULMONARY EMBOLISM [None]
  - VENOUS THROMBOSIS LIMB [None]
